FAERS Safety Report 6153124-5 (Version None)
Quarter: 2009Q2

REPORT INFORMATION
  Report Type: 
  Country: None (occurrence: None)
  Receive Date: 20090413
  Receipt Date: 20090404
  Transmission Date: 20091009
  Serious: Yes (Death, Hospitalization)
  Sender: FDA-Public Use
  Company Number: A0544897A

PATIENT
  Age: 81 Year
  Sex: Male
  Weight: 113.2 kg

DRUGS (8)
  1. TOSITUMOMAB [Suspect]
     Indication: NON-HODGKIN'S LYMPHOMA
     Route: 042
     Dates: start: 19971107, end: 19971107
  2. TOSITUMOMAB [Suspect]
     Route: 042
     Dates: start: 19971107, end: 19971107
  3. TOSITUMOMAB [Suspect]
     Route: 042
     Dates: start: 19971114, end: 19971114
  4. TOSITUMOMAB [Suspect]
     Route: 042
     Dates: start: 19971114, end: 19971114
  5. TOSITUMOMAB [Suspect]
     Route: 042
     Dates: start: 19980723, end: 19980723
  6. IODINE I 131 TOSITUMOMAB [Suspect]
     Indication: NON-HODGKIN'S LYMPHOMA
     Route: 042
     Dates: start: 19980723, end: 19980723
  7. TOSITUMOMAB [Suspect]
     Route: 042
     Dates: start: 19980731, end: 19980731
  8. IODINE I 131 TOSITUMOMAB [Suspect]
     Route: 042
     Dates: start: 19980731, end: 19980731

REACTIONS (5)
  - HICCUPS [None]
  - INJURY [None]
  - METASTASES TO MENINGES [None]
  - SUBDURAL HAEMATOMA [None]
  - THROMBOCYTOPENIA [None]
